FAERS Safety Report 6669195-3 (Version None)
Quarter: 2010Q2

REPORT INFORMATION
  Report Type: 
  Country: None (occurrence: None)
  Receive Date: 20100406
  Receipt Date: 20100323
  Transmission Date: 20101027
  Serious: No
  Sender: FDA-Public Use
  Company Number: US-B.I. PHARMACEUTICALS,INC./RIDGEFIELD-2010-BP-03374BP

PATIENT
  Age: 68 Year
  Sex: Female

DRUGS (4)
  1. MICARDIS [Suspect]
     Indication: HYPERTENSION
     Dosage: 40 MG
     Route: 048
     Dates: start: 20090101
  2. METFORMIN [Concomitant]
     Indication: DIABETES MELLITUS
  3. PROTONIX [Concomitant]
     Indication: GASTROOESOPHAGEAL REFLUX DISEASE
  4. ASPIRIN [Concomitant]
     Indication: PROPHYLAXIS

REACTIONS (1)
  - WEIGHT INCREASED [None]
